FAERS Safety Report 9240980 (Version 1)
Quarter: 2013Q1

REPORT INFORMATION
  Report Type: Spontaneous
  Country: US (occurrence: None)
  Receive Date: 20121120
  Receipt Date: 20121120
  Transmission Date: 20140127
  Serious: No
  Sender: FDA-Public Use
  Company Number: 1000039549

PATIENT
  Age: 61 Year
  Sex: Female

DRUGS (4)
  1. VIIBRYD [Suspect]
     Indication: DEPRESSION
     Dosage: 10MG (10MG, 1 IN 1 D, ORAL)
     Route: 048
     Dates: start: 20121011
  2. ABILIFY (ARIPIPRAZOLE) [Concomitant]
  3. NEXIUM [Concomitant]
  4. INSULIN (INSULIN) [Concomitant]

REACTIONS (1)
  - Abdominal pain upper [None]
